FAERS Safety Report 8927005 (Version 1)
Quarter: 2012Q4

REPORT INFORMATION
  Report Type: 
  Country: US (occurrence: US)
  Receive Date: 20121127
  Receipt Date: 20121127
  Transmission Date: 20130627
  Serious: No
  Sender: FDA-Public Use
  Company Number: US-BAYER-2012-123232

PATIENT
  Age: 61 Year
  Sex: Female
  Weight: 116.55 kg

DRUGS (9)
  1. ALEVE CAPLET/TABLET,MIDOL EXTENDED RELIEF CAPLET [Suspect]
     Dosage: 2 DF, BID
     Route: 048
     Dates: start: 20121114
  2. DEXILANT [Concomitant]
  3. CYMBALTA [Concomitant]
  4. PRAVASTATIN SODIUM [Concomitant]
  5. VALIUM [Concomitant]
  6. LISINOPRIL [Concomitant]
  7. LOPRESSOR [Concomitant]
  8. MULTIVITAMIN [Concomitant]
  9. MIRTAZAPIN [Concomitant]

REACTIONS (1)
  - Overdose [None]
